FAERS Safety Report 7788677-4 (Version None)
Quarter: 2011Q3

REPORT INFORMATION
  Report Type: 
  Country: None (occurrence: None)
  Receive Date: 20110928
  Receipt Date: 20110916
  Transmission Date: 20111222
  Serious: Yes (Other)
  Sender: FDA-Public Use
  Company Number: AUR-APL-2011-05149

PATIENT
  Age: 67 Year
  Sex: Female
  Weight: 63 kg

DRUGS (8)
  1. NEURONTIN [Suspect]
     Indication: NEUROPATHY PERIPHERAL
     Dosage: (900 MG, 1 D), ORAL, ORAL
     Route: 048
  2. NEXIUM [Concomitant]
  3. SIMVASTATIN [Suspect]
     Indication: BLOOD CHOLESTEROL
     Dosage: 920 MG, 1 D), ORAL
     Route: 048
  4. AMLODIPINE BESYLATE [Concomitant]
  5. ACETAMINOPHEN W/HYDROCODONE BITARTRATE (VICODIN) [Concomitant]
  6. VAGIFEM [Concomitant]
  7. BYSTOLIC [Concomitant]
  8. ASPIRIN [Concomitant]

REACTIONS (12)
  - LIP SWELLING [None]
  - BLOOD CHOLESTEROL INCREASED [None]
  - LIP DRY [None]
  - BURNING SENSATION [None]
  - ANGIOEDEMA [None]
  - PAIN IN EXTREMITY [None]
  - RENAL CYST [None]
  - BLOOD CALCIUM INCREASED [None]
  - PROTEIN URINE PRESENT [None]
  - ERYTHEMA [None]
  - LIP INJURY [None]
  - SWOLLEN TONGUE [None]
